FAERS Safety Report 9645851 (Version 1)
Quarter: 2013Q4

REPORT INFORMATION
  Report Type: Spontaneous
  Country: US (occurrence: None)
  Receive Date: 20131023
  Receipt Date: 20131023
  Transmission Date: 20140711
  Serious: Yes (Hospitalization, Other)
  Sender: FDA-Public Use
  Company Number: CPI-5080

PATIENT
  Age: 48 Year
  Sex: Female

DRUGS (3)
  1. N-ACETYLCYSTEINE [Suspect]
     Indication: AUTOIMMUNE HEPATITIS
     Dosage: 400 MG ONE TIMES DOSE, 600 MG BEDTIME INCREASED TO 1400 MG
  2. N-ACETYLCYSTEINE [Suspect]
     Indication: DRUG-INDUCED LIVER INJURY
     Dosage: 400 MG ONE TIMES DOSE, 600 MG BEDTIME INCREASED TO 1400 MG
  3. ORAL PREDNISOLONE [Concomitant]

REACTIONS (6)
  - Jaundice [None]
  - Nausea [None]
  - Decreased appetite [None]
  - Autoimmune hepatitis [None]
  - Drug-induced liver injury [None]
  - Prothrombin time prolonged [None]
